FAERS Safety Report 15708191 (Version 1)
Quarter: 2018Q4

REPORT INFORMATION
  Report Type: Spontaneous
  Country: US (occurrence: US)
  Receive Date: 20181210
  Receipt Date: 20181210
  Transmission Date: 20190205
  Serious: No
  Sender: FDA-Public Use
  Company Number: None

PATIENT
  Age: 17 Year
  Sex: Male

DRUGS (2)
  1. OMNITROPE [Suspect]
     Active Substance: SOMATROPIN
     Indication: HYPOPITUITARISM
     Dosage: ?          OTHER FREQUENCY:7 DAYS A WEEK;?
     Route: 058
     Dates: start: 20170815
  2. NO MED LIST AVAILABLE [Concomitant]

REACTIONS (3)
  - Product availability issue [None]
  - Product label confusion [None]
  - Product quality issue [None]

NARRATIVE: CASE EVENT DATE: 20181130
